FAERS Safety Report 8833255 (Version 1)
Quarter: 2012Q4

REPORT INFORMATION
  Report Type: 
  Country: JP (occurrence: JP)
  Receive Date: 20121010
  Receipt Date: 20121010
  Transmission Date: 20130627
  Serious: Yes (Hospitalization, Other)
  Sender: FDA-Public Use
  Company Number: PHHY2012JP088463

PATIENT

DRUGS (5)
  1. ZOMETA [Suspect]
     Indication: MULTIPLE MYELOMA
     Dosage: UNK UKN, UNK
     Route: 041
     Dates: start: 201206
  2. ZOMETA [Suspect]
     Dosage: UNK UKN, UNK
     Route: 041
  3. ZOMETA [Suspect]
     Dosage: UNK UKN, UNK
     Route: 041
  4. ZOMETA [Suspect]
     Dosage: UNK UKN, UNK
     Route: 041
  5. ZOMETA [Suspect]
     Dosage: UNK UKN, UNK
     Route: 041
     Dates: end: 201207

REACTIONS (4)
  - Renal impairment [Unknown]
  - Quadriplegia [Unknown]
  - Paraesthesia [Unknown]
  - Hypoaesthesia [Unknown]
